FAERS Safety Report 7357968-3 (Version None)
Quarter: 2011Q1

REPORT INFORMATION
  Report Type: 
  Country: None (occurrence: None)
  Receive Date: 20110314
  Receipt Date: 20110314
  Transmission Date: 20110831
  Serious: Yes (Hospitalization)
  Sender: FDA-Public Use
  Company Number: None

PATIENT
  Sex: Male
  Weight: 22.68 kg

DRUGS (3)
  1. VINCRISTINE SULFATE [Suspect]
     Dosage: 5.6 MG
  2. METHOTREXATE [Suspect]
     Dosage: 16000 MG
  3. MERCAPTOPURINE [Suspect]
     Dosage: 600 MG

REACTIONS (3)
  - VOMITING [None]
  - DIARRHOEA [None]
  - BLOOD POTASSIUM DECREASED [None]
